FAERS Safety Report 17025030 (Version 1)
Quarter: 2019Q4

REPORT INFORMATION
  Report Type: Spontaneous
  Country: US (occurrence: US)
  Receive Date: 20191113
  Receipt Date: 20191113
  Transmission Date: 20200122
  Serious: Yes (Life-Threatening, Hospitalization, Disabling, Other)
  Sender: FDA-Public Use
  Company Number: US-HIKMA PHARMACEUTICALS USA INC.-US-H14001-19-49698

PATIENT
  Age: 3 Year
  Sex: Male

DRUGS (1)
  1. OXYCODONE [Suspect]
     Active Substance: OXYCODONE
     Indication: PRODUCT USED FOR UNKNOWN INDICATION
     Route: 048

REACTIONS (16)
  - Brain herniation [Recovering/Resolving]
  - Decubitus ulcer [Unknown]
  - Blindness [Unknown]
  - Cerebral haemorrhage [Recovering/Resolving]
  - Muscle spasticity [Unknown]
  - Coma [Recovered/Resolved]
  - Brain oedema [Recovering/Resolving]
  - Disseminated intravascular coagulation [Unknown]
  - Encephalitis [Recovering/Resolving]
  - Speech disorder [Unknown]
  - Toxic leukoencephalopathy [Recovering/Resolving]
  - Respiratory acidosis [Unknown]
  - Multiple organ dysfunction syndrome [Unknown]
  - Metabolic acidosis [Unknown]
  - Toxicity to various agents [Unknown]
  - Selective eating disorder [Unknown]
